FAERS Safety Report 22005623 (Version 1)
Quarter: 2023Q1

REPORT INFORMATION
  Report Type: Spontaneous
  Country: US (occurrence: None)
  Receive Date: 20230215
  Receipt Date: 20230215
  Transmission Date: 20230418
  Serious: Yes (Hospitalization)
  Sender: FDA-Public Use
  Company Number: None

PATIENT
  Age: 63 Year
  Sex: Female
  Weight: 115.21 kg

DRUGS (26)
  1. SORAFENIB [Suspect]
     Active Substance: SORAFENIB
     Indication: Hepatic cancer
     Dosage: 400MG DAILY ORAL?
     Route: 048
  2. ALBUTEROL [Concomitant]
     Active Substance: ALBUTEROL
  3. ATORVASTATIN [Concomitant]
     Active Substance: ATORVASTATIN
  4. AZITHROMYCIN [Concomitant]
     Active Substance: AZITHROMYCIN
  5. BUSPIRONE [Concomitant]
     Active Substance: BUSPIRONE HYDROCHLORIDE
  6. CETIRIZINE [Concomitant]
     Active Substance: CETIRIZINE HYDROCHLORIDE
  7. CULTURELLE [Concomitant]
     Active Substance: LACTOBACILLUS RHAMNOSUS
  8. DOCUSATE [Concomitant]
     Active Substance: DOCUSATE
  9. ELIQUIS [Concomitant]
     Active Substance: APIXABAN
  10. FLUTICASONE [Concomitant]
     Active Substance: FLUTICASONE
  11. FOLIC ACID [Concomitant]
     Active Substance: FOLIC ACID
  12. FUROSEMIDE [Concomitant]
     Active Substance: FUROSEMIDE
  13. GABAPENTIN [Concomitant]
     Active Substance: GABAPENTIN
  14. MIRALAX [Concomitant]
     Active Substance: POLYETHYLENE GLYCOL 3350
  15. Ondansatron [Concomitant]
  16. OXYCODONE [Concomitant]
     Active Substance: OXYCODONE
  17. PANTOPRAZOLE [Concomitant]
     Active Substance: PANTOPRAZOLE
  18. Robitussin Cough+Chest Cong DM [Concomitant]
  19. SORAFENIB [Concomitant]
     Active Substance: SORAFENIB
  20. CARBOXYMETHYLCELLULOSE SODIUM\DEVICE\SORBINICATE [Concomitant]
     Active Substance: CARBOXYMETHYLCELLULOSE SODIUM\DEVICE\SORBINICATE
  21. SENNA [Concomitant]
     Active Substance: SENNA LEAF\SENNOSIDES\SENNOSIDES A AND B
  22. SILDENAFIL [Concomitant]
     Active Substance: SILDENAFIL
  23. TRELEGY ELLIPTA [Concomitant]
     Active Substance: FLUTICASONE FUROATE\UMECLIDINIUM BROMIDE\VILANTEROL TRIFENATATE
  24. UPTRAVI [Concomitant]
     Active Substance: SELEXIPAG
  25. VITAMIN B12 [Concomitant]
     Active Substance: CYANOCOBALAMIN
  26. XTAMPZA ER [Concomitant]
     Active Substance: OXYCODONE

REACTIONS (4)
  - Abdominal pain [None]
  - Arthralgia [None]
  - Urinary tract infection [None]
  - Multiple allergies [None]

NARRATIVE: CASE EVENT DATE: 20230130
